FAERS Safety Report 5568714-8 (Version None)
Quarter: 2007Q4

REPORT INFORMATION
  Report Type: 
  Country: None (occurrence: None)
  Receive Date: 20071220
  Receipt Date: 20061121
  Transmission Date: 20080405
  Serious: No
  Sender: FDA-Public Use
  Company Number: A0628289A

PATIENT
  Age: 81 Year
  Sex: Male

DRUGS (8)
  1. AVODART [Suspect]
     Indication: BENIGN PROSTATIC HYPERPLASIA
     Dosage: .5MG PER DAY
     Route: 048
     Dates: start: 20061101
  2. ASPIRIN [Concomitant]
  3. HYDROCHLOROTHIAZIDE [Concomitant]
  4. CELEBREX [Concomitant]
  5. PAROXETINE [Concomitant]
  6. TOPROL-XL [Concomitant]
  7. FLOMAX [Concomitant]
  8. DIOVAN [Concomitant]

REACTIONS (1)
  - BLOOD PRESSURE INCREASED [None]
